FAERS Safety Report 13084866 (Version 1)
Quarter: 2017Q1

REPORT INFORMATION
  Report Type: Report from Study
  Country: US (occurrence: US)
  Receive Date: 20170104
  Receipt Date: 20170104
  Transmission Date: 20170428
  Serious: No
  Sender: FDA-Public Use
  Company Number: US-JNJFOC-20161220549

PATIENT
  Age: 47 Year
  Sex: Female

DRUGS (1)
  1. STELARA [Suspect]
     Active Substance: USTEKINUMAB
     Indication: CROHN^S DISEASE
     Route: 058
     Dates: start: 20161110

REACTIONS (9)
  - Rash [Recovering/Resolving]
  - Blood pressure increased [Unknown]
  - Heart rate decreased [Unknown]
  - Pruritus [Recovering/Resolving]
  - Confusional state [Unknown]
  - Insomnia [Recovering/Resolving]
  - Migraine [Not Recovered/Not Resolved]
  - Myopia [Not Recovered/Not Resolved]
  - Mouth swelling [Recovering/Resolving]

NARRATIVE: CASE EVENT DATE: 201611
